FAERS Safety Report 20512497 (Version 5)
Quarter: 2023Q1

REPORT INFORMATION
  Report Type: Spontaneous
  Country: AU (occurrence: AU)
  Receive Date: 20220224
  Receipt Date: 20230210
  Transmission Date: 20230417
  Serious: Yes (Other)
  Sender: FDA-Public Use
  Company Number: AU-PFIZER INC-202200285330

PATIENT
  Age: 22 Year
  Sex: Male

DRUGS (10)
  1. ATORVASTATIN CALCIUM [Suspect]
     Active Substance: ATORVASTATIN CALCIUM
     Dosage: 80 MG (NOCTE)
  2. CLOZAPINE [Suspect]
     Active Substance: CLOZAPINE
     Indication: Schizophrenia
     Dosage: UNK
     Dates: start: 20190110
  3. CLOZAPINE [Suspect]
     Active Substance: CLOZAPINE
     Dosage: 200 MG (NOCTE)
  4. PANTOPRAZOLE [Suspect]
     Active Substance: PANTOPRAZOLE
     Dosage: 20 MG, 1X/DAY
  5. REBOXETINE [Suspect]
     Active Substance: REBOXETINE
     Dosage: 12 MG, DAILY (4MG MANE, 8MG NOCTE)
  6. ARIPIPRAZOLE [Suspect]
     Active Substance: ARIPIPRAZOLE
     Indication: Schizophrenia
     Dosage: 400 MG, MONTHLY (EVERY 4 WEEKS)
     Route: 030
  7. ATENOLOL [Suspect]
     Active Substance: ATENOLOL
     Dosage: 50 MG, DAILY
  8. DIAZEPAM [Suspect]
     Active Substance: DIAZEPAM
     Indication: Anxiety
     Dosage: 1 DF
  9. DIAZEPAM [Suspect]
     Active Substance: DIAZEPAM
     Dosage: 5 MG, AS NEEDED
  10. METFORMIN [Suspect]
     Active Substance: METFORMIN HYDROCHLORIDE
     Dosage: 500 MG, 3X/DAY

REACTIONS (19)
  - Mitral valve incompetence [Unknown]
  - Tricuspid valve incompetence [Unknown]
  - Pulmonary valve incompetence [Unknown]
  - Obesity [Unknown]
  - Cardiac disorder [Unknown]
  - Orthostatic hypotension [Unknown]
  - Tachycardia [Not Recovered/Not Resolved]
  - Dizziness [Unknown]
  - Dehydration [Unknown]
  - Blood triglycerides increased [Unknown]
  - Blood thyroid stimulating hormone increased [Unknown]
  - Blood cholesterol increased [Unknown]
  - Low density lipoprotein increased [Unknown]
  - Gamma-glutamyltransferase increased [Unknown]
  - Alanine aminotransferase increased [Unknown]
  - Eosinophilia [Unknown]
  - C-reactive protein increased [Unknown]
  - Heart rate decreased [Unknown]
  - Sinus tachycardia [Unknown]

NARRATIVE: CASE EVENT DATE: 20120618
